FAERS Safety Report 11599501 (Version 1)
Quarter: 2015Q4

REPORT INFORMATION
  Report Type: Spontaneous
  Country: FR (occurrence: FR)
  Receive Date: 20151006
  Receipt Date: 20151006
  Transmission Date: 20160304
  Serious: Yes (Hospitalization)
  Sender: FDA-Public Use
  Company Number: FR-ASTRAZENECA-2015SE94716

PATIENT
  Age: 23134 Day
  Sex: Male

DRUGS (22)
  1. BUMETANIDE. [Concomitant]
     Active Substance: BUMETANIDE
  2. LERCAN [Concomitant]
     Active Substance: LERCANIDIPINE
     Route: 048
  3. TAMSULOSIN [Concomitant]
     Active Substance: TAMSULOSIN
     Route: 048
  4. FLUINDIONE [Concomitant]
     Active Substance: FLUINDIONE
     Dosage: DAILY
     Route: 048
  5. PRAZOSIN [Concomitant]
     Active Substance: PRAZOSIN
     Route: 048
  6. IMODIUM [Concomitant]
     Active Substance: LOPERAMIDE HYDROCHLORIDE
  7. ATACAND [Suspect]
     Active Substance: CANDESARTAN CILEXETIL
     Route: 048
     Dates: start: 20150729, end: 20150803
  8. CIPROFLOXACIN. [Suspect]
     Active Substance: CIPROFLOXACIN
     Route: 048
     Dates: start: 20150731, end: 20150803
  9. DIFFU K [Concomitant]
     Active Substance: POTASSIUM CHLORIDE
     Route: 048
  10. ALLOPURINOL. [Concomitant]
     Active Substance: ALLOPURINOL
     Route: 048
  11. UVEDOSE [Concomitant]
     Active Substance: CHOLECALCIFEROL
     Route: 048
  12. NEBIVOLOL. [Concomitant]
     Active Substance: NEBIVOLOL
     Route: 048
  13. VALSARTAN. [Concomitant]
     Active Substance: VALSARTAN
     Route: 048
  14. OROCAL D3 VITAMIN [Concomitant]
     Route: 048
  15. PERMIXON [Concomitant]
     Active Substance: SAW PALMETTO
     Route: 048
  16. NOVOMIX [Concomitant]
     Active Substance: INSULIN ASPART
     Dosage: 40 UNIT IN THE MORNING , 50 UNIT AT NOON, 60 UNIT IN THE EVENING
     Route: 058
  17. INSULIN [Concomitant]
     Active Substance: INSULIN NOS
     Dosage: 30 UNIT IN THE MORNING
  18. VALSARTAN. [Concomitant]
     Active Substance: VALSARTAN
     Route: 048
     Dates: end: 20150727
  19. ATACAND [Suspect]
     Active Substance: CANDESARTAN CILEXETIL
     Route: 048
     Dates: start: 20150728, end: 20150728
  20. BACTRIM [Suspect]
     Active Substance: SULFAMETHOXAZOLE\TRIMETHOPRIM
     Route: 048
     Dates: start: 20150731, end: 20150803
  21. FLECAINIDE [Concomitant]
     Active Substance: FLECAINIDE
     Route: 048
  22. PERMIXON [Concomitant]
     Active Substance: SAW PALMETTO
     Route: 048

REACTIONS (2)
  - Acute kidney injury [Recovered/Resolved]
  - Blood creatinine increased [Unknown]

NARRATIVE: CASE EVENT DATE: 20150802
